FAERS Safety Report 5853094-0 (Version None)
Quarter: 2008Q3

REPORT INFORMATION
  Report Type: 
  Country: None (occurrence: None)
  Receive Date: 20080821
  Receipt Date: 20080814
  Transmission Date: 20090109
  Serious: Yes (Other)
  Sender: FDA-Public Use
  Company Number: US-TYCO HEALTHCARE/MALLINCKRODT-T200801237

PATIENT

DRUGS (1)
  1. THALLOUS CHLORIDE TL 201 [Suspect]
     Indication: SCAN MYOCARDIAL PERFUSION
     Dosage: UNK, SINGLE
     Dates: start: 20070401, end: 20070401

REACTIONS (2)
  - RENAL FAILURE [None]
  - RENAL FUNCTION TEST ABNORMAL [None]
